FAERS Safety Report 5897015-3 (Version None)
Quarter: 2008Q3

REPORT INFORMATION
  Report Type: 
  Country: None (occurrence: None)
  Receive Date: 20080924
  Receipt Date: 20080401
  Transmission Date: 20090109
  Serious: Yes (Other)
  Sender: FDA-Public Use
  Company Number: US-ASTRAZENECA-2008UW06527

PATIENT
  Age: 28 Year
  Sex: Male

DRUGS (6)
  1. SEROQUEL XR [Suspect]
     Route: 048
     Dates: start: 20080325, end: 20080325
  2. SEROQUEL XR [Suspect]
     Route: 048
     Dates: start: 20080326
  3. KEFLEX [Concomitant]
  4. RISPERDAL [Concomitant]
     Dates: start: 20080312
  5. RISPERDAL [Concomitant]
     Dosage: 2MG QAM + 4MG QHS
     Dates: start: 20080312, end: 20080325
  6. LEXAPRO [Concomitant]
     Dates: start: 20080312

REACTIONS (1)
  - PRIAPISM [None]
